FAERS Safety Report 4844645-3 (Version None)
Quarter: 2005Q4

REPORT INFORMATION
  Report Type: 
  Country: None (occurrence: None)
  Receive Date: 20051205
  Receipt Date: 20030120
  Transmission Date: 20060501
  Serious: Yes (Hospitalization)
  Sender: FDA-Public Use
  Company Number: US-BRISTOL-MYERS SQUIBB COMPANY-12162293

PATIENT
  Age: 90 Year
  Sex: Female
  Weight: 55 kg

DRUGS (6)
  1. VASTEN TABS [Suspect]
     Route: 048
     Dates: end: 20020804
  2. FLECAINIDE ACETATE [Suspect]
     Route: 048
     Dates: end: 20020804
  3. MOPRAL [Suspect]
     Route: 048
  4. HYZAAR [Suspect]
     Dosage: DOSAGE FORM = TABLET
     Route: 048
     Dates: end: 20020804
  5. GAVISCON [Suspect]
     Route: 048
     Dates: end: 20020804
  6. TEMESTA [Concomitant]
     Route: 048

REACTIONS (3)
  - ARRHYTHMIA [None]
  - CEREBROVASCULAR ACCIDENT [None]
  - THROMBOCYTOPENIA [None]
